FAERS Safety Report 8094201-1 (Version None)
Quarter: 2012Q1

REPORT INFORMATION
  Report Type: 
  Country: None (occurrence: None)
  Receive Date: 20120130
  Receipt Date: 20120130
  Transmission Date: 20120608
  Serious: Yes (Hospitalization, Other)
  Sender: FDA-Public Use
  Company Number: None

PATIENT
  Age: 32 Year
  Sex: Male
  Weight: 77.11 kg

DRUGS (1)
  1. CIPROFLOXACIN [Suspect]
     Indication: URINARY TRACT INFECTION

REACTIONS (6)
  - MENTAL DISORDER [None]
  - MUSCLE DISORDER [None]
  - DYSPHAGIA [None]
  - DYSKINESIA [None]
  - APHAGIA [None]
  - NERVOUSNESS [None]
